FAERS Safety Report 25053718 (Version 2)
Quarter: 2025Q2

REPORT INFORMATION
  Report Type: Spontaneous
  Country: US (occurrence: US)
  Receive Date: 20250307
  Receipt Date: 20250415
  Transmission Date: 20250717
  Serious: No
  Sender: SANOFI AVENTIS
  Company Number: US-SA-2025SA064516

PATIENT
  Age: 41 Year
  Sex: Male

DRUGS (2)
  1. DUPIXENT [Suspect]
     Active Substance: DUPILUMAB
     Indication: Skin exfoliation
     Dosage: 300 MG, QOW
     Route: 058
     Dates: start: 20250212
  2. DUPIXENT [Suspect]
     Active Substance: DUPILUMAB
     Indication: Skin exfoliation
     Dosage: 300 MG, QOW
     Route: 058
     Dates: start: 20250212

REACTIONS (1)
  - No adverse event [Unknown]

NARRATIVE: CASE EVENT DATE: 20250212
